FAERS Safety Report 4585500-6 (Version None)
Quarter: 2005Q1

REPORT INFORMATION
  Report Type: 
  Country: None (occurrence: None)
  Receive Date: 20050214
  Receipt Date: 20040913
  Transmission Date: 20050727
  Serious: Yes (Hospitalization)
  Sender: FDA-Public Use
  Company Number: 05-056

PATIENT
  Age: 65 Year
  Sex: Male

DRUGS (1)
  1. DEXAMETHASONE [Suspect]
     Indication: MULTIPLE MYELOMA
     Dosage: 40 MG PO
     Dates: start: 20030701, end: 20030718

REACTIONS (4)
  - INCONTINENCE [None]
  - LETHARGY [None]
  - NEUTROPENIA [None]
  - SEPSIS [None]
